FAERS Safety Report 17989070 (Version 1)
Quarter: 2020Q3

REPORT INFORMATION
  Report Type: Spontaneous
  Country: FR (occurrence: FR)
  Receive Date: 20200707
  Receipt Date: 20200707
  Transmission Date: 20201103
  Serious: Yes (Hospitalization)
  Sender: FDA-Public Use
  Company Number: FR-MYLANLABS-2020M1059991

PATIENT
  Age: 47 Year
  Sex: Male
  Weight: 76 kg

DRUGS (5)
  1. RISPERIDONE. [Suspect]
     Active Substance: RISPERIDONE
     Indication: SCHIZOPHRENIA
     Dosage: 8 MILLIGRAM, QD
     Route: 048
     Dates: start: 20200522, end: 20200602
  2. DIAZEPAM. [Concomitant]
     Active Substance: DIAZEPAM
     Indication: ANXIETY
     Dosage: 25 MILLIGRAM, QD
     Route: 048
     Dates: start: 20200522, end: 20200602
  3. OLANZAPINE. [Concomitant]
     Active Substance: OLANZAPINE
     Indication: SCHIZOPHRENIA
     Dosage: 10 MILLIGRAM, QD
     Route: 048
     Dates: start: 201904
  4. CYAMEMAZINE [Suspect]
     Active Substance: CYAMEMAZINE
     Indication: SCHIZOPHRENIA
     Dosage: 100 MILLIGRAM, QD
     Route: 048
     Dates: start: 20200522, end: 20200603
  5. ABILIFY MAINTENA [Concomitant]
     Active Substance: ARIPIPRAZOLE
     Indication: SCHIZOPHRENIA
     Dosage: 400 MILLIGRAM, Q28D
     Route: 030
     Dates: start: 201808

REACTIONS (3)
  - Confusional state [Recovering/Resolving]
  - Rhabdomyolysis [Recovering/Resolving]
  - General physical health deterioration [Recovering/Resolving]

NARRATIVE: CASE EVENT DATE: 20200602
